FAERS Safety Report 11377959 (Version 1)
Quarter: 2015Q3

REPORT INFORMATION
  Report Type: Spontaneous
  Country: US (occurrence: US)
  Receive Date: 20150811
  Receipt Date: 20150811
  Transmission Date: 20151125
  Serious: No
  Sender: FDA-Public Use
  Company Number: US-ELI_LILLY_AND_COMPANY-US200912000893

PATIENT
  Sex: Female

DRUGS (4)
  1. HUMULIN R [Suspect]
     Active Substance: INSULIN HUMAN
     Dosage: UNK, UNKNOWN
  2. HUMULIN N [Suspect]
     Active Substance: INSULIN HUMAN
     Dosage: UNK, UNKNOWN
  3. HUMULIN R [Suspect]
     Active Substance: INSULIN HUMAN
  4. HUMULIN N [Suspect]
     Active Substance: INSULIN HUMAN

REACTIONS (5)
  - Stress [Not Recovered/Not Resolved]
  - Poor quality drug administered [Unknown]
  - Blood glucose increased [Not Recovered/Not Resolved]
  - Incorrect product storage [Unknown]
  - Blood glucose decreased [Not Recovered/Not Resolved]
